FAERS Safety Report 18890759 (Version 1)
Quarter: 2021Q1

REPORT INFORMATION
  Report Type: Spontaneous
  Country: VN (occurrence: VN)
  Receive Date: 20210215
  Receipt Date: 20210215
  Transmission Date: 20210420
  Serious: Yes (Hospitalization, Other)
  Sender: FDA-Public Use
  Company Number: VN-LEADINGPHARMA-VN-2021LEALIT00057

PATIENT
  Sex: Female
  Weight: 1.58 kg

DRUGS (2)
  1. SPIRONOLACTONE. [Concomitant]
     Active Substance: SPIRONOLACTONE
     Indication: BRONCHOPULMONARY DYSPLASIA
     Dosage: 2  MG/KG/12  H
     Route: 065
  2. FUROSEMIDE TABLETS USP [Suspect]
     Active Substance: FUROSEMIDE
     Indication: BRONCHOPULMONARY DYSPLASIA
     Route: 065

REACTIONS (1)
  - Drug ineffective [Unknown]
